FAERS Safety Report 19045962 (Version 1)
Quarter: 2021Q1

REPORT INFORMATION
  Report Type: Spontaneous
  Country: CA (occurrence: CA)
  Receive Date: 20210322
  Receipt Date: 20210322
  Transmission Date: 20210420
  Serious: Yes (Hospitalization, Other)
  Sender: FDA-Public Use
  Company Number: CA-TEVA-2021-CA-1891923

PATIENT
  Age: 58 Year
  Sex: Male

DRUGS (19)
  1. VENLAFAXINE HYDROCHLORIDE. [Interacting]
     Active Substance: VENLAFAXINE HYDROCHLORIDE
     Dosage: 75 MILLIGRAM DAILY;
     Route: 065
  2. NICOTINE. [Interacting]
     Active Substance: NICOTINE
     Indication: PRODUCT USED FOR UNKNOWN INDICATION
     Route: 055
  3. NICOTINE. [Interacting]
     Active Substance: NICOTINE
     Indication: PRODUCT USED FOR UNKNOWN INDICATION
     Route: 048
  4. QUETIAPINE FUMARATE. [Interacting]
     Active Substance: QUETIAPINE FUMARATE
     Dosage: 200 MILLIGRAM DAILY;
     Route: 048
  5. QUETIAPINE FUMARATE. [Interacting]
     Active Substance: QUETIAPINE FUMARATE
     Dosage: 100 MILLIGRAM DAILY;
     Route: 048
  6. VENLAFAXINE HYDROCHLORIDE. [Interacting]
     Active Substance: VENLAFAXINE HYDROCHLORIDE
     Dosage: 75 MILLIGRAM DAILY;
     Route: 065
  7. VENLAFAXINE HYDROCHLORIDE. [Interacting]
     Active Substance: VENLAFAXINE HYDROCHLORIDE
     Indication: POST-TRAUMATIC STRESS DISORDER
     Dosage: 150 MILLIGRAM DAILY;
     Route: 065
  8. VENLAFAXINE HYDROCHLORIDE. [Interacting]
     Active Substance: VENLAFAXINE HYDROCHLORIDE
     Dosage: 150 MILLIGRAM DAILY;
     Route: 065
  9. KETOCONAZOLE. [Suspect]
     Active Substance: KETOCONAZOLE
     Indication: PRODUCT USED FOR UNKNOWN INDICATION
     Route: 065
  10. QUETIAPINE FUMARATE. [Interacting]
     Active Substance: QUETIAPINE FUMARATE
     Indication: PRODUCT USED FOR UNKNOWN INDICATION
     Dosage: 300 MILLIGRAM DAILY;
     Route: 048
  11. VITAMINS NOS [Concomitant]
     Active Substance: VITAMINS
  12. VENLAFAXINE HYDROCHLORIDE. [Interacting]
     Active Substance: VENLAFAXINE HYDROCHLORIDE
     Indication: MAJOR DEPRESSION
     Dosage: 150 MILLIGRAM DAILY;
     Route: 065
  13. VENLAFAXINE HYDROCHLORIDE. [Interacting]
     Active Substance: VENLAFAXINE HYDROCHLORIDE
     Dosage: 75 MILLIGRAM DAILY;
     Route: 065
  14. VENLAFAXINE HYDROCHLORIDE. [Interacting]
     Active Substance: VENLAFAXINE HYDROCHLORIDE
     Route: 065
  15. VENLAFAXINE HYDROCHLORIDE. [Interacting]
     Active Substance: VENLAFAXINE HYDROCHLORIDE
     Indication: FLASHBACK
     Route: 065
  16. ATIVAN [Interacting]
     Active Substance: LORAZEPAM
     Indication: SLEEP DISORDER
     Route: 060
  17. IMOVANE [Interacting]
     Active Substance: ZOPICLONE
     Indication: SLEEP DISORDER
     Dosage: 7.5 MILLIGRAM DAILY;
     Route: 065
  18. QUETIAPINE FUMARATE. [Interacting]
     Active Substance: QUETIAPINE FUMARATE
     Dosage: 75 MILLIGRAM DAILY;
     Route: 048
  19. VENLAFAXINE HYDROCHLORIDE. [Interacting]
     Active Substance: VENLAFAXINE HYDROCHLORIDE
     Route: 065

REACTIONS (12)
  - Dizziness [Not Recovered/Not Resolved]
  - Pain [Not Recovered/Not Resolved]
  - Loss of consciousness [Not Recovered/Not Resolved]
  - Intentional product misuse [Not Recovered/Not Resolved]
  - Drug hypersensitivity [Not Recovered/Not Resolved]
  - Jaw fracture [Not Recovered/Not Resolved]
  - Drug interaction [Not Recovered/Not Resolved]
  - Sleep disorder [Not Recovered/Not Resolved]
  - Drug ineffective [Not Recovered/Not Resolved]
  - Lip pain [Not Recovered/Not Resolved]
  - Nerve injury [Not Recovered/Not Resolved]
  - Accidental overdose [Not Recovered/Not Resolved]
